FAERS Safety Report 15597500 (Version 3)
Quarter: 2020Q1

REPORT INFORMATION
  Report Type: Report from Study
  Country: JP (occurrence: JP)
  Receive Date: 20181108
  Receipt Date: 20200110
  Transmission Date: 20200409
  Serious: Yes (Hospitalization, Other)
  Sender: FDA-Public Use
  Company Number: JP-CLINIGEN GROUP PLC/ CLINIGEN HEALTHCARE LTD-JP-CLGN-18-00225

PATIENT
  Age: 1 Year
  Sex: Female
  Weight: 7.5 kg

DRUGS (44)
  1. ONCOVIN [Suspect]
     Active Substance: VINCRISTINE SULFATE
     Route: 042
     Dates: start: 20180709, end: 20180709
  2. ONCOVIN [Suspect]
     Active Substance: VINCRISTINE SULFATE
     Route: 042
     Dates: start: 20180713, end: 20180713
  3. CYLOCIDE [Suspect]
     Active Substance: CYTARABINE
     Dates: start: 20180618, end: 20180618
  4. CYLOCIDE [Suspect]
     Active Substance: CYTARABINE
     Dates: start: 20180802, end: 20180802
  5. COSMEGEN [Suspect]
     Active Substance: DACTINOMYCIN
     Route: 042
     Dates: start: 20180709, end: 20180713
  6. NASEA [Concomitant]
     Active Substance: RAMOSETRON HYDROCHLORIDE
     Route: 042
     Dates: start: 20180802, end: 20180804
  7. HISHIPHAGEN-C [Concomitant]
     Route: 042
     Dates: start: 20180806, end: 20180809
  8. SAVENE [Suspect]
     Active Substance: DEXRAZOXANE
     Route: 041
     Dates: start: 20180802, end: 20180803
  9. ENDOXAN [Suspect]
     Active Substance: CYCLOPHOSPHAMIDE
     Indication: PRODUCT USED FOR UNKNOWN INDICATION
     Dates: start: 20180507, end: 20180509
  10. SOLU-CORTEF [Concomitant]
     Active Substance: HYDROCORTISONE SODIUM SUCCINATE
     Dates: start: 20180618, end: 20180618
  11. NASEA [Concomitant]
     Active Substance: RAMOSETRON HYDROCHLORIDE
     Route: 042
     Dates: start: 20180528, end: 20180601
  12. FLUCONAZOLE. [Concomitant]
     Active Substance: FLUCONAZOLE
     Indication: PRODUCT USED FOR UNKNOWN INDICATION
     Route: 048
     Dates: start: 20180618
  13. SAVENE [Suspect]
     Active Substance: DEXRAZOXANE
     Indication: CHEMOTHERAPY CARDIOTOXICITY ATTENUATION
     Route: 041
     Dates: start: 20180507, end: 20180508
  14. ENDOXAN [Suspect]
     Active Substance: CYCLOPHOSPHAMIDE
     Dates: start: 20180528, end: 20180530
  15. ENDOXAN [Suspect]
     Active Substance: CYCLOPHOSPHAMIDE
     Dates: start: 20180709, end: 20180711
  16. NASEA [Concomitant]
     Active Substance: RAMOSETRON HYDROCHLORIDE
     Indication: PRODUCT USED FOR UNKNOWN INDICATION
     Route: 042
     Dates: start: 20180507, end: 20180509
  17. PINORUBIN [Suspect]
     Active Substance: PIRARUBICIN
     Dates: start: 20180618, end: 20180619
  18. ENDOXAN [Suspect]
     Active Substance: CYCLOPHOSPHAMIDE
     Dates: start: 20180618, end: 20180620
  19. ONCOVIN [Suspect]
     Active Substance: VINCRISTINE SULFATE
     Indication: PRODUCT USED FOR UNKNOWN INDICATION
     Route: 042
     Dates: start: 20180507, end: 20180507
  20. ONCOVIN [Suspect]
     Active Substance: VINCRISTINE SULFATE
     Route: 042
     Dates: start: 20180618, end: 20180618
  21. COSMEGEN [Suspect]
     Active Substance: DACTINOMYCIN
     Indication: PRODUCT USED FOR UNKNOWN INDICATION
     Route: 042
     Dates: start: 20180528, end: 20180601
  22. METHOTREXATE. [Concomitant]
     Active Substance: METHOTREXATE
     Dates: start: 20180618, end: 20180618
  23. SOLU-CORTEF [Concomitant]
     Active Substance: HYDROCORTISONE SODIUM SUCCINATE
     Dates: start: 20180802, end: 20180802
  24. PROEMEND [Concomitant]
     Active Substance: FOSAPREPITANT
     Indication: PRODUCT USED FOR UNKNOWN INDICATION
     Route: 041
     Dates: start: 20180528, end: 20180528
  25. SAVENE [Suspect]
     Active Substance: DEXRAZOXANE
     Route: 041
     Dates: start: 20180618, end: 20180619
  26. ENDOXAN [Suspect]
     Active Substance: CYCLOPHOSPHAMIDE
     Dates: start: 20180802, end: 20180804
  27. CYLOCIDE [Suspect]
     Active Substance: CYTARABINE
     Indication: PRODUCT USED FOR UNKNOWN INDICATION
     Dates: start: 20180507, end: 20180507
  28. ISOTONIC SODIUM CHLORIDE SOLUTION [Concomitant]
     Active Substance: SODIUM CHLORIDE
     Route: 041
     Dates: start: 20180618, end: 20180619
  29. PROEMEND [Concomitant]
     Active Substance: FOSAPREPITANT
     Route: 041
     Dates: start: 20180802, end: 20180802
  30. HISHIPHAGEN-C [Concomitant]
     Route: 042
     Dates: start: 20180718, end: 20180718
  31. PINORUBIN [Suspect]
     Active Substance: PIRARUBICIN
     Dates: start: 20180602, end: 20180603
  32. ONCOVIN [Suspect]
     Active Substance: VINCRISTINE SULFATE
     Route: 042
     Dates: start: 20180528, end: 20180528
  33. ONCOVIN [Suspect]
     Active Substance: VINCRISTINE SULFATE
     Route: 042
     Dates: start: 20180601, end: 20180601
  34. NASEA [Concomitant]
     Active Substance: RAMOSETRON HYDROCHLORIDE
     Route: 042
     Dates: start: 20180618, end: 20180620
  35. BAKTAR [Concomitant]
     Active Substance: SULFAMETHOXAZOLE\TRIMETHOPRIM
     Indication: PRODUCT USED FOR UNKNOWN INDICATION
     Route: 048
     Dates: start: 20180618
  36. PINORUBIN [Suspect]
     Active Substance: PIRARUBICIN
     Indication: PRODUCT USED FOR UNKNOWN INDICATION
     Dates: start: 20180507, end: 20180508
  37. ONCOVIN [Suspect]
     Active Substance: VINCRISTINE SULFATE
     Route: 042
     Dates: start: 20180802, end: 20180802
  38. ISOTONIC SODIUM CHLORIDE SOLUTION [Concomitant]
     Active Substance: SODIUM CHLORIDE
     Indication: MEDICATION DILUTION
     Route: 041
     Dates: start: 20180507, end: 20180508
  39. ISOTONIC SODIUM CHLORIDE SOLUTION [Concomitant]
     Active Substance: SODIUM CHLORIDE
     Route: 041
     Dates: start: 20180802, end: 20180803
  40. METHOTREXATE. [Concomitant]
     Active Substance: METHOTREXATE
     Indication: PRODUCT USED FOR UNKNOWN INDICATION
     Dates: start: 20180507, end: 20180507
  41. METHOTREXATE. [Concomitant]
     Active Substance: METHOTREXATE
     Dates: start: 20180802, end: 20180802
  42. SOLU-CORTEF [Concomitant]
     Active Substance: HYDROCORTISONE SODIUM SUCCINATE
     Indication: PRODUCT USED FOR UNKNOWN INDICATION
     Dates: start: 20180507, end: 20180507
  43. PROEMEND [Concomitant]
     Active Substance: FOSAPREPITANT
     Route: 041
     Dates: start: 20180618, end: 20180618
  44. HISHIPHAGEN-C [Concomitant]
     Indication: PRODUCT USED FOR UNKNOWN INDICATION
     Route: 042
     Dates: start: 20180622, end: 20180624

REACTIONS (3)
  - Bone marrow failure [Not Recovered/Not Resolved]
  - Pyrexia [Recovered/Resolved]
  - Off label use [Unknown]

NARRATIVE: CASE EVENT DATE: 20180507
